FAERS Safety Report 25954463 (Version 1)
Quarter: 2025Q4

REPORT INFORMATION
  Report Type: Spontaneous
  Country: JP (occurrence: JP)
  Receive Date: 20251024
  Receipt Date: 20251024
  Transmission Date: 20260118
  Serious: Yes (Life-Threatening)
  Sender: MERCK SHARP & DOHME LLC
  Company Number: JP-009507513-2342431

PATIENT
  Age: 76 Year
  Sex: Male
  Weight: 60.5 kg

DRUGS (3)
  1. KEYTRUDA [Suspect]
     Active Substance: PEMBROLIZUMAB
     Indication: Squamous cell carcinoma of lung
     Dosage: TWICE
     Route: 041
     Dates: start: 20250528, end: 20250708
  2. CISPLATIN [Concomitant]
     Active Substance: CISPLATIN
     Route: 041
     Dates: start: 20250528, end: 20250708
  3. GEMCITABINE [Concomitant]
     Active Substance: GEMCITABINE
     Route: 041
     Dates: start: 20250528, end: 20250708

REACTIONS (2)
  - Immune thrombocytopenia [Recovered/Resolved]
  - Haemophagocytic lymphohistiocytosis [Recovered/Resolved]

NARRATIVE: CASE EVENT DATE: 20250808
